APPROVED DRUG PRODUCT: IBUPROFEN
Active Ingredient: IBUPROFEN
Strength: 100MG/5ML
Dosage Form/Route: SUSPENSION;ORAL
Application: A076925 | Product #001 | TE Code: AB
Applicant: PADAGIS US LLC
Approved: Sep 23, 2004 | RLD: No | RS: No | Type: RX